FAERS Safety Report 21239956 (Version 1)
Quarter: 2022Q3

REPORT INFORMATION
  Report Type: Spontaneous
  Country: TW (occurrence: TW)
  Receive Date: 20220822
  Receipt Date: 20220822
  Transmission Date: 20221027
  Serious: Yes (Hospitalization, Other)
  Sender: FDA-Public Use
  Company Number: TW-NOVARTISPH-NVSC2022TW186334

PATIENT
  Age: 72 Year
  Sex: Male

DRUGS (3)
  1. CARVEDILOL [Suspect]
     Active Substance: CARVEDILOL
     Indication: Product used for unknown indication
     Dosage: UNK (SWALLOWING AN UNKNOWN AMOUNT)
     Route: 048
  2. AMLODIPINE [Suspect]
     Active Substance: AMLODIPINE BESYLATE
     Indication: Product used for unknown indication
     Dosage: UNK (SWALLOWING AN UNKNOWN AMOUNT)
     Route: 048
  3. TELMISARTAN [Suspect]
     Active Substance: TELMISARTAN
     Indication: Product used for unknown indication
     Dosage: UNK (SWALLOWING AN UNKNOWN AMOUNT)
     Route: 048

REACTIONS (4)
  - Hypotension [Recovered/Resolved]
  - Hyperhidrosis [Unknown]
  - Intentional overdose [Unknown]
  - Suicide attempt [Unknown]
